FAERS Safety Report 9130407 (Version 2)
Quarter: 2013Q2

REPORT INFORMATION
  Report Type: Spontaneous
  Country: FR (occurrence: FR)
  Receive Date: 20130228
  Receipt Date: 20130410
  Transmission Date: 20140414
  Serious: Yes (Hospitalization)
  Sender: FDA-Public Use
  Company Number: FR-ABBOTT-13P-056-1053413-00

PATIENT
  Age: 53 Year
  Sex: Female

DRUGS (5)
  1. HUMIRA [Suspect]
     Indication: ANKYLOSING SPONDYLITIS
     Dates: end: 200607
  2. ANALGESICS [Concomitant]
     Indication: ANKYLOSING SPONDYLITIS
  3. NSAID^S [Concomitant]
     Indication: ANKYLOSING SPONDYLITIS
  4. PAMIDRONATE [Concomitant]
     Indication: ANKYLOSING SPONDYLITIS
     Dosage: 6 INFUSIONS
     Dates: start: 2004, end: 2005
  5. PAMIDRONATE [Concomitant]
     Dosage: INFUSION
     Dates: start: 2005, end: 2006

REACTIONS (1)
  - Breast cancer [Not Recovered/Not Resolved]
